FAERS Safety Report 11681933 (Version 2)
Quarter: 2015Q4

REPORT INFORMATION
  Report Type: Report from Study
  Country: AR (occurrence: AR)
  Receive Date: 20151029
  Receipt Date: 20151122
  Transmission Date: 20160304
  Serious: Yes (Hospitalization, Other)
  Sender: FDA-Public Use
  Company Number: PHHY2015AR125086

PATIENT
  Age: 66 Year
  Sex: Male
  Weight: 77.6 kg

DRUGS (5)
  1. MYFORTIC [Suspect]
     Active Substance: MYCOPHENOLATE SODIUM
     Indication: RENAL TRANSPLANT
     Dosage: 720 MG, QD
     Route: 048
     Dates: start: 20150404
  2. MYFORTIC [Suspect]
     Active Substance: MYCOPHENOLATE SODIUM
     Indication: IMMUNOSUPPRESSION
  3. TACROLIMUS. [Concomitant]
     Active Substance: TACROLIMUS
     Indication: PROPHYLAXIS AGAINST TRANSPLANT REJECTION
     Dosage: 5 MG, UNK
     Route: 065
     Dates: start: 20150404
  4. PREDNISONE. [Concomitant]
     Active Substance: PREDNISONE
     Indication: PROPHYLAXIS AGAINST TRANSPLANT REJECTION
     Dosage: 8 MG, UNK
     Route: 065
     Dates: start: 20150404
  5. VANCOMYCIN [Concomitant]
     Active Substance: VANCOMYCIN
     Indication: PRODUCT USED FOR UNKNOWN INDICATION
     Dosage: UNK
     Route: 065
     Dates: start: 20151006

REACTIONS (5)
  - Urinary tract infection pseudomonal [Recovered/Resolved]
  - Hydronephrosis [Unknown]
  - Pyonephrosis [Recovered/Resolved]
  - Pyrexia [Recovered/Resolved]
  - Staphylococcal bacteraemia [Unknown]

NARRATIVE: CASE EVENT DATE: 20151004
